FAERS Safety Report 5936175-2 (Version None)
Quarter: 2008Q4

REPORT INFORMATION
  Report Type: 
  Country: None (occurrence: None)
  Receive Date: 20081030
  Receipt Date: 20081020
  Transmission Date: 20090506
  Serious: Yes (Other)
  Sender: FDA-Public Use
  Company Number: CA-PFIZER INC-2008088978

PATIENT
  Age: 76 Year
  Sex: Male

DRUGS (2)
  1. CELEBREX [Suspect]
     Route: 048
  2. WARFARIN SODIUM [Concomitant]

REACTIONS (3)
  - ABDOMINAL PAIN UPPER [None]
  - COAGULOPATHY [None]
  - GASTROINTESTINAL DISORDER [None]
